FAERS Safety Report 6439440-8 (Version None)
Quarter: 2009Q4

REPORT INFORMATION
  Report Type: 
  Country: None (occurrence: None)
  Receive Date: 20091113
  Receipt Date: 20091110
  Transmission Date: 20100525
  Serious: Yes (Other)
  Sender: FDA-Public Use
  Company Number: US-BAYER-200915079BCC

PATIENT
  Sex: Male

DRUGS (1)
  1. ALEVE [Suspect]

REACTIONS (3)
  - DYSURIA [None]
  - NEPHRECTOMY [None]
  - RENAL IMPAIRMENT [None]
